FAERS Safety Report 7817119-5 (Version None)
Quarter: 2011Q4

REPORT INFORMATION
  Report Type: 
  Country: None (occurrence: None)
  Receive Date: 20111017
  Receipt Date: 20111017
  Transmission Date: 20120403
  Serious: Yes (Death, Life-Threatening)
  Sender: FDA-Public Use
  Company Number: None

PATIENT
  Age: 64 Year
  Sex: Female
  Weight: 104.32 kg

DRUGS (2)
  1. REMICADE [Concomitant]
  2. PRADAXA [Suspect]
     Indication: ATRIAL FIBRILLATION
     Dosage: UNKNOWN
     Route: 041
     Dates: start: 20110326, end: 20110404

REACTIONS (5)
  - RETROPERITONEAL HAEMATOMA [None]
  - HYPOVOLAEMIC SHOCK [None]
  - SEPTIC SHOCK [None]
  - EXSANGUINATION [None]
  - ANGIOPATHY [None]
